FAERS Safety Report 4952423-X (Version None)
Quarter: 2006Q1

REPORT INFORMATION
  Report Type: 
  Country: None (occurrence: None)
  Receive Date: 20060317
  Receipt Date: 20060306
  Transmission Date: 20060701
  Serious: Yes (Hospitalization)
  Sender: FDA-Public Use
  Company Number: 2006EU000304

PATIENT
  Age: 46 Year
  Sex: Male

DRUGS (6)
  1. FK506 (TACROLIMUS CAPSULES) [Suspect]
     Indication: RENAL TRANSPLANT
     Dosage: 4 MG ORAL
     Route: 048
     Dates: start: 20040903
  2. MYCOPHENOLATE MOFETIL [Suspect]
     Indication: RENAL TRANSPLANT
     Dosage: 2 G ORAL
     Route: 048
     Dates: start: 20040909
  3. DACLIZUMAB (DACLIZUMAB) [Suspect]
     Indication: RENAL TRANSPLANT
     Dosage: 120 MG UID/QD IV
     Route: 042
     Dates: start: 20040727, end: 20041022
  4. METHYLPREDNISOLONE [Suspect]
     Indication: RENAL TRANSPLANT
     Dosage: 4 MG
     Dates: start: 20040729
  5. SULFAMETHOXAZOLE + TRIMETHOPRIM [Concomitant]
  6. VALACYCLOVIR HCL [Concomitant]

REACTIONS (1)
  - HYPERPARATHYROIDISM [None]
